FAERS Safety Report 8216125-9 (Version None)
Quarter: 2012Q1

REPORT INFORMATION
  Report Type: 
  Country: None (occurrence: None)
  Receive Date: 20120316
  Receipt Date: 20120305
  Transmission Date: 20120608
  Serious: Yes (Hospitalization, Other)
  Sender: FDA-Public Use
  Company Number: US-ELI_LILLY_AND_COMPANY-US201203002235

PATIENT
  Sex: Female

DRUGS (6)
  1. HUMULIN R [Suspect]
     Indication: DIABETES MELLITUS
     Dosage: UNK, UNKNOWN
  2. NOVOLOG [Concomitant]
     Dosage: UNK
  3. MIRAPEX [Concomitant]
     Indication: TREMOR
     Dosage: UNK
  4. HUMALOG [Suspect]
     Dosage: UNK UNK, UNKNOWN
     Route: 058
     Dates: start: 19980101
  5. HUMALOG [Suspect]
     Indication: DIABETES MELLITUS
     Dosage: UNK UNK, UNKNOWN
     Route: 058
     Dates: start: 19980101
  6. HUMULIN N [Suspect]
     Indication: DIABETES MELLITUS
     Dosage: UNK, UNKNOWN

REACTIONS (15)
  - INCONTINENCE [None]
  - INFECTION [None]
  - BRAIN INJURY [None]
  - PAIN IN EXTREMITY [None]
  - MEMORY IMPAIRMENT [None]
  - DRUG INEFFECTIVE [None]
  - MOBILITY DECREASED [None]
  - BLOOD GLUCOSE DECREASED [None]
  - TREMOR [None]
  - BLOOD GLUCOSE INCREASED [None]
  - GASTROINTESTINAL DISORDER [None]
  - DIABETIC COMA [None]
  - NEUROPATHY PERIPHERAL [None]
  - MALAISE [None]
  - DEMENTIA [None]
